FAERS Safety Report 18197328 (Version 1)
Quarter: 2020Q3

REPORT INFORMATION
  Report Type: Spontaneous
  Country: CA (occurrence: CA)
  Receive Date: 20200826
  Receipt Date: 20200826
  Transmission Date: 20201103
  Serious: Yes (Hospitalization)
  Sender: FDA-Public Use
  Company Number: CA-ACCORD-197433

PATIENT
  Sex: Male

DRUGS (9)
  1. FUROSEMIDE. [Concomitant]
     Active Substance: FUROSEMIDE
  2. ASPIRIN REGIMEN BAYER [Concomitant]
     Active Substance: ASPIRIN
     Route: 065
  3. ROSUVASTATIN. [Suspect]
     Active Substance: ROSUVASTATIN
     Indication: PRODUCT USED FOR UNKNOWN INDICATION
     Route: 065
  4. CANDESARTAN. [Concomitant]
     Active Substance: CANDESARTAN
  5. ISOSORBIDE. [Concomitant]
     Active Substance: ISOSORBIDE
  6. METOPROLOL. [Concomitant]
     Active Substance: METOPROLOL
  7. SYNTHROID [Concomitant]
     Active Substance: LEVOTHYROXINE SODIUM
  8. ROSUVASTATIN. [Suspect]
     Active Substance: ROSUVASTATIN
     Indication: PRODUCT USED FOR UNKNOWN INDICATION
     Route: 065
  9. FEBUXOSTAT. [Concomitant]
     Active Substance: FEBUXOSTAT

REACTIONS (3)
  - Acute kidney injury [Not Recovered/Not Resolved]
  - Chest pain [Not Recovered/Not Resolved]
  - Rhabdomyolysis [Not Recovered/Not Resolved]
